FAERS Safety Report 5597990-0 (Version None)
Quarter: 2008Q1

REPORT INFORMATION
  Report Type: 
  Country: None (occurrence: None)
  Receive Date: 20080122
  Receipt Date: 20080109
  Transmission Date: 20080703
  Serious: Yes (Other)
  Sender: FDA-Public Use
  Company Number: US-BAYER-200810759NA

PATIENT
  Age: 58 Year
  Sex: Male

DRUGS (1)
  1. LEVITRA [Suspect]
     Indication: DISTURBANCE IN SEXUAL AROUSAL
     Route: 049
     Dates: start: 20060101, end: 20071225

REACTIONS (1)
  - BLOOD URINE PRESENT [None]
